FAERS Safety Report 4513838-7 (Version None)
Quarter: 2004Q4

REPORT INFORMATION
  Report Type: 
  Country: None (occurrence: None)
  Receive Date: 20041130
  Receipt Date: 20040913
  Transmission Date: 20050328
  Serious: No
  Sender: FDA-Public Use
  Company Number: US-GLAXOSMITHKLINE-A0525430A

PATIENT
  Age: 51 Year
  Sex: Female
  Weight: 55 kg

DRUGS (4)
  1. WELLBUTRIN XL [Suspect]
     Indication: DEPRESSION
     Dosage: 150MG PER DAY
     Route: 048
     Dates: start: 20040101
  2. SERZONE [Concomitant]
  3. KLONOPIN [Concomitant]
  4. LAMICTAL [Concomitant]

REACTIONS (3)
  - HYPERSENSITIVITY [None]
  - PARAESTHESIA [None]
  - TINNITUS [None]
